FAERS Safety Report 9254585 (Version 1)
Quarter: 2013Q2

REPORT INFORMATION
  Report Type: Spontaneous
  Country: CO (occurrence: CO)
  Receive Date: 20130425
  Receipt Date: 20130425
  Transmission Date: 20140414
  Serious: Yes (Other)
  Sender: FDA-Public Use
  Company Number: CO-009507513-1304COL014579

PATIENT
  Sex: Male

DRUGS (1)
  1. PEG-INTRON [Suspect]
     Indication: HEPATITIS C
     Dosage: 80 MICROGRAM, QW
     Route: 058
     Dates: start: 20130215, end: 20130422

REACTIONS (3)
  - Eye haemorrhage [Unknown]
  - Hepatic function abnormal [Unknown]
  - Thrombocytopenia [Unknown]
